FAERS Safety Report 4701335-5 (Version None)
Quarter: 2005Q2

REPORT INFORMATION
  Report Type: 
  Country: None (occurrence: None)
  Receive Date: 20050627
  Receipt Date: 20050615
  Transmission Date: 20051028
  Serious: Yes (Other)
  Sender: FDA-Public Use
  Company Number: 2005088632

PATIENT
  Age: 52 Year
  Sex: Female
  Weight: 54.4316 kg

DRUGS (3)
  1. BENADRYL [Suspect]
     Indication: DERMATITIS CONTACT
     Dosage: 150 MG OVER 1 DAY; 100 MG QD X WEEKS,ORAL
     Route: 048
     Dates: start: 20050324, end: 20050401
  2. SOLU-MEDROL [Suspect]
     Indication: DERMATITIS CONTACT
     Dates: start: 20050326
  3. PREDNISONE [Suspect]
     Indication: DERMATITIS CONTACT
     Dates: start: 20050326

REACTIONS (20)
  - ANAEMIA [None]
  - DEHYDRATION [None]
  - DYSPNOEA [None]
  - FEELING ABNORMAL [None]
  - FLATULENCE [None]
  - GASTRIC DISORDER [None]
  - GASTRIC ULCER [None]
  - GENERALISED OEDEMA [None]
  - HAEMORRHAGE [None]
  - HEART RATE DECREASED [None]
  - INSOMNIA [None]
  - JAUNDICE [None]
  - LOCALISED OEDEMA [None]
  - MOOD SWINGS [None]
  - PALLOR [None]
  - PARANOIA [None]
  - PULMONARY OEDEMA [None]
  - SCHIZOPHRENIFORM DISORDER [None]
  - SOMNOLENCE [None]
  - SWELLING FACE [None]
